FAERS Safety Report 19884124 (Version 1)
Quarter: 2021Q3

REPORT INFORMATION
  Report Type: Spontaneous
  Country: CN (occurrence: CN)
  Receive Date: 20210927
  Receipt Date: 20210927
  Transmission Date: 20211014
  Serious: Yes (Life-Threatening, Hospitalization, Other)
  Sender: FDA-Public Use
  Company Number: CN-BAXTER-2021BAX030115

PATIENT
  Age: 16 Year
  Sex: Male
  Weight: 60 kg

DRUGS (23)
  1. 0.9% SODIUM CHLORIDE INJECTION [Suspect]
     Active Substance: SODIUM CHLORIDE
     Dosage: 0.9% SODIUM CHLORIDE INJECTION (500ML) + CISPLATIN INJECTION, DOSE RE?INTRODUCED
     Route: 041
  2. LEUCOVORIN CALCIUM. [Suspect]
     Active Substance: LEUCOVORIN CALCIUM
     Dosage: DOSE RE?INTRODUCED
     Route: 042
  3. 0.9% SODIUM CHLORIDE INJECTION [Suspect]
     Active Substance: SODIUM CHLORIDE
     Dosage: 0.9% SODIUM CHLORIDE INJECTION + IFOSFAMIDE FOR INJECTION, DOSE RE?INTRODUCED
     Route: 041
  4. 0.9% SODIUM CHLORIDE INJECTION [Suspect]
     Active Substance: SODIUM CHLORIDE
     Indication: MEDICATION DILUTION
     Dosage: 0.9% SODIUM CHLORIDE INJECTION (500ML) + METHOTREXATE INJECTION (17000 MG)
     Route: 041
     Dates: start: 20210820, end: 20210820
  5. 0.9% SODIUM CHLORIDE INJECTION [Suspect]
     Active Substance: SODIUM CHLORIDE
     Dosage: 0.9% SODIUM CHLORIDE INJECTION + IFOSFAMIDE FOR INJECTION
     Route: 041
     Dates: start: 20210825, end: 20210828
  6. 0.9% SODIUM CHLORIDE INJECTION [Suspect]
     Active Substance: SODIUM CHLORIDE
     Dosage: 0.9% SODIUM CHLORIDE INJECTION (500ML) + CISPLATIN INJECTION
     Route: 041
     Dates: start: 20210825, end: 20210825
  7. LIBAODUO [Suspect]
     Active Substance: DOXORUBICIN HYDROCHLORIDE
     Dosage: ROUTE OF ADMINISTRATION: INTRA?PUMP INJECTION
     Route: 065
  8. HOLOXAN [Suspect]
     Active Substance: IFOSFAMIDE
     Route: 041
  9. 0.9% SODIUM CHLORIDE INJECTION [Suspect]
     Active Substance: SODIUM CHLORIDE
     Dosage: 0.9% SODIUM CHLORIDE INJECTION (500ML) + METHOTREXATE INJECTION (17000 MG), DOSE RE?INTRODUCED
     Route: 041
  10. 0.9% SODIUM CHLORIDE INJECTION [Suspect]
     Active Substance: SODIUM CHLORIDE
     Dosage: 0.9% SODIUM CHLORIDE INJECTION + LEUCOVORIN CALCIUM INJECTION, DOSE RE?INTRODUCED
     Route: 041
  11. 5% GLUCOSE  INJECTION [Suspect]
     Active Substance: DEXTROSE
     Indication: BONE CANCER
     Route: 041
     Dates: start: 20210825, end: 20210825
  12. HOLOXAN [Suspect]
     Active Substance: IFOSFAMIDE
     Indication: BONE CANCER
     Route: 041
     Dates: start: 20210825, end: 20210828
  13. 0.9% SODIUM CHLORIDE INJECTION [Suspect]
     Active Substance: SODIUM CHLORIDE
     Dosage: 0.9% SODIUM CHLORIDE INJECTION + LEUCOVORIN CALCIUM INJECTION
     Route: 041
     Dates: start: 20210821, end: 20210824
  14. HOLOXAN [Suspect]
     Active Substance: IFOSFAMIDE
     Dosage: DOSE RE?INTRODUCED
     Route: 041
  15. LEUCOVORIN CALCIUM. [Suspect]
     Active Substance: LEUCOVORIN CALCIUM
     Indication: BONE CANCER
     Route: 042
     Dates: start: 20210821, end: 20210824
  16. NUOXIN [Suspect]
     Active Substance: CISPLATIN
     Indication: BONE CANCER
     Route: 041
     Dates: start: 20210825, end: 20210825
  17. 5% GLUCOSE  INJECTION [Suspect]
     Active Substance: DEXTROSE
     Dosage: 5% GLUCOSE INJECTION + DOXORUBICIN LIPOSOME INJECTION, DOSE RE?INTRODUCED
     Route: 041
  18. LIBAODUO [Suspect]
     Active Substance: DOXORUBICIN HYDROCHLORIDE
     Indication: BONE CANCER
     Dosage: ROUTE OF ADMINISTRATION: INTRA?PUMP INJECTION
     Route: 065
     Dates: start: 20210825, end: 20210825
  19. LIBAODUO [Suspect]
     Active Substance: DOXORUBICIN HYDROCHLORIDE
     Dosage: DOSE RE?INTRODUCED, ROUTE OF ADMINISTRATION: INTRA?PUMP INJECTION
     Route: 065
  20. METHOTREXATE. [Suspect]
     Active Substance: METHOTREXATE
     Dosage: DOSE RE?INTRODUCED
     Route: 041
  21. NUOXIN [Suspect]
     Active Substance: CISPLATIN
     Dosage: DOSE RE?INTRODUCED
     Route: 041
  22. NUOXIN [Suspect]
     Active Substance: CISPLATIN
     Route: 041
  23. METHOTREXATE. [Suspect]
     Active Substance: METHOTREXATE
     Indication: BONE CANCER
     Route: 041
     Dates: start: 20210820, end: 20210820

REACTIONS (2)
  - Myelosuppression [Recovered/Resolved]
  - Myelosuppression [Recovering/Resolving]

NARRATIVE: CASE EVENT DATE: 20210905
